FAERS Safety Report 8803506 (Version 3)
Quarter: 2012Q4

REPORT INFORMATION
  Report Type: 
  Country: US (occurrence: US)
  Receive Date: 20120924
  Receipt Date: 20121101
  Transmission Date: 20130627
  Serious: Yes (Hospitalization)
  Sender: FDA-Public Use
  Company Number: US-PFIZER INC-2012233981

PATIENT
  Sex: Female

DRUGS (2)
  1. NEURONTIN [Suspect]
  2. PROTONIX [Suspect]

REACTIONS (3)
  - Renal disorder [Unknown]
  - Eye disorder [Unknown]
  - Memory impairment [Unknown]
